FAERS Safety Report 19308455 (Version 1)
Quarter: 2021Q2

REPORT INFORMATION
  Report Type: Spontaneous
  Country: JP (occurrence: JP)
  Receive Date: 20210526
  Receipt Date: 20210526
  Transmission Date: 20210717
  Serious: Yes (Hospitalization)
  Sender: FDA-Public Use
  Company Number: JP-TEVA-2021-JP-1914826

PATIENT
  Age: 69 Year
  Sex: Male

DRUGS (1)
  1. PREDNISOLONE. [Suspect]
     Active Substance: PREDNISOLONE
     Indication: GIANT CELL ARTERITIS
     Dosage: STARTING DOSE OF 4 WEEKS; THEN THE DOSE WAS TAPERED BY 5MG PER WEEK
     Route: 048
     Dates: start: 201203

REACTIONS (3)
  - Candida infection [Recovered/Resolved]
  - Superinfection [Recovered/Resolved]
  - Staphylococcal infection [Recovered/Resolved]

NARRATIVE: CASE EVENT DATE: 2012
